FAERS Safety Report 23827064 (Version 1)
Quarter: 2024Q2

REPORT INFORMATION
  Report Type: Other
  Country: DE (occurrence: None)
  Receive Date: 20240507
  Receipt Date: 20240507
  Transmission Date: 20240716
  Serious: Yes (Death, Other)
  Sender: FDA-Public Use
  Company Number: DE-ROCHE-3557810

PATIENT

DRUGS (5)
  1. ATEZOLIZUMAB [Suspect]
     Active Substance: ATEZOLIZUMAB
     Indication: Neoplasm malignant
     Route: 065
  2. CEMIPLIMAB [Suspect]
     Active Substance: CEMIPLIMAB
     Indication: Neoplasm malignant
     Route: 065
  3. PEMBROLIZUMAB [Suspect]
     Active Substance: PEMBROLIZUMAB
     Indication: Neoplasm malignant
     Route: 065
  4. NIVOLUMAB [Suspect]
     Active Substance: NIVOLUMAB
     Indication: Neoplasm malignant
     Route: 065
  5. IPILIMUMAB [Suspect]
     Active Substance: IPILIMUMAB
     Indication: Neoplasm malignant
     Route: 065

REACTIONS (27)
  - Encephalitis [Fatal]
  - Hepatitis [Fatal]
  - Guillain-Barre syndrome [Unknown]
  - Pancreatitis [Unknown]
  - Erythema multiforme [Unknown]
  - Agranulocytosis [Unknown]
  - Autoimmune haemolytic anaemia [Unknown]
  - Aplastic anaemia [Unknown]
  - Haemophagocytic lymphohistiocytosis [Unknown]
  - Colitis [Unknown]
  - Pneumonitis [Unknown]
  - Myositis [Unknown]
  - Myocarditis [Unknown]
  - Nephritis [Unknown]
  - Duodenitis [Unknown]
  - Gastritis [Unknown]
  - Pemphigoid [Unknown]
  - Rash papular [Unknown]
  - Tooth erosion [Unknown]
  - Polyarthritis [Unknown]
  - Rheumatic disorder [Unknown]
  - Polymyalgia rheumatica [Unknown]
  - Dermatomyositis [Unknown]
  - Myasthenia gravis [Unknown]
  - Polyneuropathy [Unknown]
  - Factor VIII deficiency [Unknown]
  - Thrombocytopenia [Unknown]
